FAERS Safety Report 6154159-9 (Version None)
Quarter: 2009Q2

REPORT INFORMATION
  Report Type: 
  Country: None (occurrence: None)
  Receive Date: 20090414
  Receipt Date: 20090410
  Transmission Date: 20091009
  Serious: Yes (Death, Hospitalization, Other)
  Sender: FDA-Public Use
  Company Number: US-ROCHE-623649

PATIENT
  Sex: Female
  Weight: 59 kg

DRUGS (1)
  1. CAPECITABINE [Suspect]
     Indication: OVARIAN CANCER
     Dosage: FREQUENCY: 3AM-2PM
     Route: 048
     Dates: start: 20090217, end: 20090331

REACTIONS (5)
  - DEATH [None]
  - HAEMORRHAGE URINARY TRACT [None]
  - INTESTINAL OBSTRUCTION [None]
  - NAUSEA [None]
  - VOMITING [None]
